FAERS Safety Report 22601752 (Version 1)
Quarter: 2023Q2

REPORT INFORMATION
  Report Type: Spontaneous
  Country: US (occurrence: US)
  Receive Date: 20230614
  Receipt Date: 20230614
  Transmission Date: 20230722
  Serious: Yes (Other)
  Sender: FDA-Public Use
  Company Number: US-AMERICAN REGENT INC-2023001384

PATIENT
  Age: 32 Year
  Sex: Male
  Weight: 88 kg

DRUGS (6)
  1. DEXMEDETOMIDINE HYDROCHLORIDE [Suspect]
     Active Substance: DEXMEDETOMIDINE HYDROCHLORIDE
     Indication: Wean from ventilator
     Dosage: 0.2 MICROGRAM PER KILOGRAM PER HOUR
     Route: 042
  2. DEXMEDETOMIDINE HYDROCHLORIDE [Suspect]
     Active Substance: DEXMEDETOMIDINE HYDROCHLORIDE
     Indication: Therapy change
     Dosage: UPTITRATED TO 0.8 MICROGRAM PER KILOGRAM PER HOUR
     Route: 042
  3. FENTANYL [Concomitant]
     Active Substance: FENTANYL
     Indication: Sedation
     Dosage: UNK, CONTINUOUS INFUSION
     Route: 042
  4. PROPOFOL [Concomitant]
     Active Substance: PROPOFOL
     Indication: Sedation
     Dosage: UNK, CONTINUOUS INFUSION
     Route: 042
  5. UNSPECIFIED INGREDIENT [Concomitant]
     Active Substance: UNSPECIFIED INGREDIENT
     Indication: Septic shock
     Dosage: UNK
     Route: 065
  6. VASOPRESSIN [Concomitant]
     Active Substance: VASOPRESSIN
     Indication: Vasopressive therapy
     Dosage: 0.2 UNITS/MIN
     Route: 065

REACTIONS (3)
  - Diabetes insipidus [Recovered/Resolved]
  - Torsade de pointes [Recovered/Resolved]
  - Product use in unapproved indication [Unknown]
